FAERS Safety Report 20312992 (Version 3)
Quarter: 2022Q1

REPORT INFORMATION
  Report Type: Report from Study
  Country: IT (occurrence: IT)
  Receive Date: 20220108
  Receipt Date: 20220207
  Transmission Date: 20220423
  Serious: Yes (Life-Threatening, Other)
  Sender: FDA-Public Use
  Company Number: IT-MLMSERVICE-20211228-3288551-1

PATIENT
  Age: 65 Year
  Sex: Female
  Weight: 69 kg

DRUGS (10)
  1. AZITHROMYCIN [Suspect]
     Active Substance: AZITHROMYCIN
     Indication: Antibiotic therapy
     Dosage: UNK
     Route: 042
     Dates: start: 202012
  2. AZITHROMYCIN [Suspect]
     Active Substance: AZITHROMYCIN
     Dosage: 500 MILLIGRAM, ONCE A DAY
     Route: 042
     Dates: start: 20201223, end: 20201225
  3. PIPERACILLIN AND TAZOBACTAM [Suspect]
     Active Substance: PIPERACILLIN SODIUM\TAZOBACTAM SODIUM
     Indication: Antibiotic therapy
     Dosage: UNK
     Route: 042
     Dates: start: 202012
  4. PIPERACILLIN AND TAZOBACTAM [Suspect]
     Active Substance: PIPERACILLIN SODIUM\TAZOBACTAM SODIUM
     Indication: Antibiotic therapy
     Dosage: 13.5 GRAM, ONCE A DAY
     Route: 042
     Dates: start: 20201223, end: 20201225
  5. TRASTUZUMAB [Concomitant]
     Active Substance: TRASTUZUMAB
     Indication: Breast cancer metastatic
     Dosage: UNK
     Route: 065
  6. TRASTUZUMAB [Concomitant]
     Active Substance: TRASTUZUMAB
     Indication: HER2 positive breast cancer
  7. PACLITAXEL [Concomitant]
     Active Substance: PACLITAXEL
     Indication: Breast cancer metastatic
     Dosage: UNK
     Route: 065
  8. PACLITAXEL [Concomitant]
     Active Substance: PACLITAXEL
     Indication: HER2 positive breast cancer
  9. COTRIMOXAZOLE [Concomitant]
     Active Substance: SULFAMETHOXAZOLE\TRIMETHOPRIM
     Indication: Pneumocystis jirovecii pneumonia
     Dosage: UNK
     Route: 065
  10. PENTAMIDINE [Concomitant]
     Active Substance: PENTAMIDINE
     Indication: Pneumocystis jirovecii pneumonia
     Dosage: UNK
     Route: 065

REACTIONS (1)
  - Drug ineffective [Recovering/Resolving]

NARRATIVE: CASE EVENT DATE: 20201201
